FAERS Safety Report 6330381-3 (Version None)
Quarter: 2009Q3

REPORT INFORMATION
  Report Type: 
  Country: None (occurrence: None)
  Receive Date: 20090827
  Receipt Date: 20090817
  Transmission Date: 20100115
  Serious: Yes (Hospitalization)
  Sender: FDA-Public Use
  Company Number: AU-RANBAXY-2009RR-26534

PATIENT
  Age: 48 Year
  Sex: Male

DRUGS (4)
  1. TOPIRAMATE [Suspect]
     Indication: EPILEPSY
     Dosage: 100 MG, BID
  2. POSACONAZOLE [Suspect]
     Dosage: 200 MG, QID
  3. VALPROATE SODIUM [Concomitant]
  4. AMPHOTERICIN B [Concomitant]

REACTIONS (2)
  - DRUG INTERACTION [None]
  - ENCEPHALOPATHY [None]
